FAERS Safety Report 8003088-4 (Version None)
Quarter: 2011Q4

REPORT INFORMATION
  Report Type: 
  Country: None (occurrence: None)
  Receive Date: 20111222
  Receipt Date: 20111212
  Transmission Date: 20120403
  Serious: Yes (Other)
  Sender: FDA-Public Use
  Company Number: FR-JNJFOC-20111201154

PATIENT
  Age: 28 Year
  Sex: Female
  Weight: 63 kg

DRUGS (8)
  1. ROVAMYCINE [Concomitant]
     Dates: start: 20091008
  2. REMICADE [Suspect]
     Indication: CROHN'S DISEASE
     Route: 042
     Dates: start: 20090724
  3. REMICADE [Suspect]
     Route: 042
     Dates: start: 20091217
  4. REMICADE [Suspect]
     Route: 042
     Dates: start: 20090605
  5. REMICADE [Suspect]
     Route: 042
     Dates: start: 20091030
  6. REMICADE [Suspect]
     Route: 042
     Dates: start: 20090824
  7. ACETAMINOPHEN [Concomitant]
     Dates: start: 20091006
  8. REMICADE [Suspect]
     Route: 042
     Dates: start: 20090911

REACTIONS (3)
  - HEPATITIS [None]
  - PREMATURE LABOUR [None]
  - MATERNAL EXPOSURE DURING PREGNANCY [None]
